FAERS Safety Report 24837657 (Version 1)
Quarter: 2025Q1

REPORT INFORMATION
  Report Type: Spontaneous
  Country: US (occurrence: None)
  Receive Date: 20250112
  Receipt Date: 20250112
  Transmission Date: 20250409
  Serious: No
  Sender: FDA-CTU
  Company Number: None

PATIENT
  Age: 60 Year
  Sex: Male
  Weight: 74.25 kg

DRUGS (8)
  1. MONTELUKAST [Suspect]
     Active Substance: MONTELUKAST
     Indication: Rhinitis allergic
     Dosage: 1 TABLET AT BEDTIME ORAL ?
     Route: 048
     Dates: start: 20250103, end: 20250111
  2. LEVOCETIRIZINE DIHYDROCHLORIDE [Suspect]
     Active Substance: LEVOCETIRIZINE DIHYDROCHLORIDE
     Indication: Rhinitis allergic
     Dosage: 1 TABLET AT BED TIME ORAL
     Route: 048
     Dates: start: 20250103, end: 20250111
  3. ROSUVASTATIN [Concomitant]
     Active Substance: ROSUVASTATIN
  4. MINERALS\VITAMINS [Concomitant]
     Active Substance: MINERALS\VITAMINS
  5. EyePromise [Concomitant]
  6. MAGNESIUM [Concomitant]
     Active Substance: MAGNESIUM
  7. TYLENOL [Concomitant]
     Active Substance: ACETAMINOPHEN
  8. IBUPROFEN [Concomitant]
     Active Substance: IBUPROFEN

REACTIONS (8)
  - Epistaxis [None]
  - Cough [None]
  - Muscular weakness [None]
  - Myalgia [None]
  - Rash [None]
  - Chest discomfort [None]
  - Musculoskeletal stiffness [None]
  - Muscle tightness [None]

NARRATIVE: CASE EVENT DATE: 20250111
